FAERS Safety Report 9529840 (Version 1)
Quarter: 2013Q3

REPORT INFORMATION
  Report Type: Spontaneous
  Country: IL (occurrence: IL)
  Receive Date: 20130917
  Receipt Date: 20130917
  Transmission Date: 20140515
  Serious: Yes (Other)
  Sender: FDA-Public Use
  Company Number: PHHY2013IL102885

PATIENT
  Age: 51 Year
  Sex: Female

DRUGS (1)
  1. ZOLEDRONATE [Suspect]
     Indication: BREAST CANCER
     Dosage: UNK UKN, UNK
     Route: 042

REACTIONS (1)
  - Osteonecrosis of jaw [Unknown]
